FAERS Safety Report 4376978-1 (Version None)
Quarter: 2004Q2

REPORT INFORMATION
  Report Type: 
  Country: None (occurrence: None)
  Receive Date: 20040608
  Receipt Date: 20040526
  Transmission Date: 20050107
  Serious: Yes (Hospitalization)
  Sender: FDA-Public Use
  Company Number: DE-JNJFOC-20040503077

PATIENT
  Sex: Female

DRUGS (6)
  1. REMICADE (INFLIXIMAB, RECOMVINANT) LYOPHILIZED POWDER [Suspect]
     Indication: RHEUMATOID ARTHRITIS
     Dosage: 300 MG, 1 IN 8 WEEK, INTRAVENOUS
     Route: 042
  2. PREDNISOLONE [Concomitant]
  3. ANALGESIC (ANALGESICS) [Concomitant]
  4. BELOC ZOC (BELOC-ZOC COMP) [Concomitant]
  5. APROVEL (IRBESARTAN) [Concomitant]
  6. ALLOPURINOL [Concomitant]

REACTIONS (1)
  - ARTHRITIS [None]
